FAERS Safety Report 7088963-X (Version None)
Quarter: 2010Q4

REPORT INFORMATION
  Report Type: 
  Country: None (occurrence: None)
  Receive Date: 20101108
  Receipt Date: 20101029
  Transmission Date: 20110411
  Serious: Yes (Other)
  Sender: FDA-Public Use
  Company Number: B0682115A

PATIENT
  Age: 35 Year
  Sex: Female
  Weight: 103 kg

DRUGS (3)
  1. ALLI [Suspect]
     Indication: WEIGHT CONTROL
     Route: 065
     Dates: start: 20100501, end: 20101017
  2. PSYCHOTROPIC DRUGS [Concomitant]
  3. FLUOXETINE HCL [Concomitant]
     Indication: DEPRESSION

REACTIONS (5)
  - CIRCULATORY COLLAPSE [None]
  - DIARRHOEA [None]
  - DIZZINESS [None]
  - FLATULENCE [None]
  - HYPERTENSION [None]
